APPROVED DRUG PRODUCT: TOLVAPTAN
Active Ingredient: TOLVAPTAN
Strength: 30MG
Dosage Form/Route: TABLET;ORAL
Application: A216063 | Product #002 | TE Code: AB2
Applicant: LUPIN LTD
Approved: Apr 23, 2025 | RLD: No | RS: No | Type: RX